FAERS Safety Report 7311439-9 (Version None)
Quarter: 2011Q1

REPORT INFORMATION
  Report Type: 
  Country: None (occurrence: None)
  Receive Date: 20110224
  Receipt Date: 20110215
  Transmission Date: 20110831
  Serious: Yes (Death, Other)
  Sender: FDA-Public Use
  Company Number: BR-TYCO HEALTHCARE/MALLINCKRODT-T201100460

PATIENT
  Age: 60 Year
  Sex: Male

DRUGS (2)
  1. EXALGO [Suspect]
     Dosage: 16 MG TWO TABLETS PER DAY AT NIGHT
  2. EXALGO [Suspect]
     Indication: CANCER PAIN
     Dosage: 16 MG THREE TIMES A DAY IN EVENINGS
     Route: 048
     Dates: start: 20100101

REACTIONS (5)
  - THROMBOSIS [None]
  - DELIRIUM [None]
  - MEMORY IMPAIRMENT [None]
  - OROPHARYNGEAL BLISTERING [None]
  - DEATH [None]
